FAERS Safety Report 5380857-0 (Version None)
Quarter: 2007Q3

REPORT INFORMATION
  Report Type: 
  Country: None (occurrence: None)
  Receive Date: 20070706
  Receipt Date: 20070626
  Transmission Date: 20080115
  Serious: Yes (Hospitalization)
  Sender: FDA-Public Use
  Company Number: US-JNJFOC-20070606506

PATIENT
  Sex: Female
  Weight: 122.47 kg

DRUGS (7)
  1. DURAGESIC-100 [Suspect]
     Route: 062
  2. DURAGESIC-100 [Suspect]
     Indication: PAIN
     Route: 062
  3. ZOLOFT [Concomitant]
     Indication: DEPRESSION
     Route: 048
  4. XANAX [Concomitant]
     Indication: NERVOUSNESS
     Route: 048
  5. WELLBUTRIN [Concomitant]
     Indication: DEPRESSION
     Route: 048
  6. LASIX [Concomitant]
     Indication: FLUID RETENTION
     Route: 048
  7. VITAMIN B-12 [Concomitant]
     Route: 050

REACTIONS (14)
  - BACK PAIN [None]
  - FIBROMYALGIA [None]
  - GASTROOESOPHAGEAL REFLUX DISEASE [None]
  - HERPES ZOSTER [None]
  - HYPOAESTHESIA [None]
  - INCORRECT DRUG ADMINISTRATION DURATION [None]
  - INSOMNIA [None]
  - MIGRAINE [None]
  - NECK PAIN [None]
  - RESTLESS LEGS SYNDROME [None]
  - RHEUMATOID ARTHRITIS [None]
  - SYSTEMIC LUPUS ERYTHEMATOSUS [None]
  - VITAMIN D DEFICIENCY [None]
  - WRONG TECHNIQUE IN DRUG USAGE PROCESS [None]
